FAERS Safety Report 16248895 (Version 3)
Quarter: 2019Q2

REPORT INFORMATION
  Report Type: Spontaneous
  Country: MX (occurrence: MX)
  Receive Date: 20190429
  Receipt Date: 20190516
  Transmission Date: 20190711
  Serious: Yes (Hospitalization)
  Sender: FDA-Public Use
  Company Number: MX-HORIZON-ACT-0103-2019

PATIENT
  Age: 4 Year
  Sex: Male
  Weight: 12.5 kg

DRUGS (1)
  1. IMUKIN [Suspect]
     Active Substance: INTERFERON GAMMA
     Indication: CHRONIC GRANULOMATOUS DISEASE
     Dosage: 16 IU, 1.5 ?G/KG/DAY, 1 EVERY 1 DAYS
     Route: 058
     Dates: start: 20181217

REACTIONS (2)
  - Off label use [Unknown]
  - Urinary tract infection [Recovered/Resolved]

NARRATIVE: CASE EVENT DATE: 20181217
